FAERS Safety Report 16149539 (Version 3)
Quarter: 2019Q2

REPORT INFORMATION
  Report Type: Spontaneous
  Country: US (occurrence: US)
  Receive Date: 20190402
  Receipt Date: 20190417
  Transmission Date: 20190711
  Serious: No
  Sender: FDA-Public Use
  Company Number: US-PFIZER INC-2019135537

PATIENT
  Age: 35 Year
  Sex: Male
  Weight: 90.7 kg

DRUGS (2)
  1. ZOLOFT [Suspect]
     Active Substance: SERTRALINE HYDROCHLORIDE
     Indication: DEPRESSION
     Dosage: UNK
  2. ZOLOFT [Suspect]
     Active Substance: SERTRALINE HYDROCHLORIDE
     Indication: ANXIETY
     Dosage: 100 MG, DAILY
     Route: 048
     Dates: start: 201903

REACTIONS (8)
  - Paraesthesia [Unknown]
  - Aggression [Unknown]
  - Energy increased [Unknown]
  - Orgasm abnormal [Not Recovered/Not Resolved]
  - Therapeutic product effect incomplete [Unknown]
  - Ejaculation disorder [Unknown]
  - Therapeutic response unexpected [Unknown]
  - Libido increased [Unknown]

NARRATIVE: CASE EVENT DATE: 201903
